FAERS Safety Report 25227371 (Version 1)
Quarter: 2025Q2

REPORT INFORMATION
  Report Type: Spontaneous
  Country: BR (occurrence: BR)
  Receive Date: 20250422
  Receipt Date: 20250422
  Transmission Date: 20250717
  Serious: Yes (Hospitalization)
  Sender: JOHNSON AND JOHNSON
  Company Number: BR-JNJFOC-20250425176

PATIENT
  Age: 60 Year
  Sex: Female

DRUGS (1)
  1. REMICADE [Suspect]
     Active Substance: INFLIXIMAB
     Indication: Product used for unknown indication
     Route: 041

REACTIONS (2)
  - Stenotrophomonas infection [Unknown]
  - Psoriatic arthropathy [Unknown]
